FAERS Safety Report 13274026 (Version 1)
Quarter: 2017Q1

REPORT INFORMATION
  Report Type: Spontaneous
  Country: TW (occurrence: TW)
  Receive Date: 20170227
  Receipt Date: 20170227
  Transmission Date: 20170428
  Serious: Yes (Other)
  Sender: FDA-Public Use
  Company Number: TW-BAYER-2017-032364

PATIENT
  Sex: Male

DRUGS (7)
  1. NEXAVAR [Suspect]
     Active Substance: SORAFENIB
     Dosage: 200 MG/TABLET
     Route: 048
  2. FAMOTIDINE. [Concomitant]
     Active Substance: FAMOTIDINE
     Dosage: 20 MG/TABLET
     Route: 048
  3. NAPROXEN. [Concomitant]
     Active Substance: NAPROXEN
     Dosage: 250 MG/TAB (0.5 QD)
     Route: 048
  4. ENTECAVIR. [Concomitant]
     Active Substance: ENTECAVIR
     Dosage: 0.5 MG QD (1 MG TABLET)
     Route: 048
  5. LANSOPRAZOLE. [Concomitant]
     Active Substance: LANSOPRAZOLE
     Dosage: 30 MG, QD TABLET
     Route: 048
  6. MEGESTROL [Concomitant]
     Active Substance: MEGESTROL
     Route: 048
  7. PRANZO [CARNITINE HCL,CYPROHEPTADINE HCL,LYSINE HCL] [Concomitant]

REACTIONS (9)
  - Ascites [None]
  - Diarrhoea [None]
  - Abdominal pain upper [None]
  - Pain [None]
  - Hepatic cirrhosis [None]
  - Palmar-plantar erythrodysaesthesia syndrome [None]
  - Decreased appetite [None]
  - Pyrexia [None]
  - Pruritus [None]

NARRATIVE: CASE EVENT DATE: 20160713
